FAERS Safety Report 10148746 (Version 2)
Quarter: 2014Q2

REPORT INFORMATION
  Report Type: Spontaneous
  Country: DE (occurrence: DE)
  Receive Date: 20140502
  Receipt Date: 20140514
  Transmission Date: 20141212
  Serious: Yes (Hospitalization)
  Sender: FDA-Public Use
  Company Number: 2014SP002270

PATIENT
  Sex: Male
  Weight: 92 kg

DRUGS (2)
  1. METHOTREXATE [Suspect]
     Indication: PSORIASIS
     Dates: start: 20100203
  2. GOLIMUMAB [Suspect]
     Indication: PSORIASIS
     Dates: start: 20091126, end: 201305

REACTIONS (2)
  - Skin disorder [Recovered/Resolved]
  - Condition aggravated [Recovered/Resolved]
